FAERS Safety Report 8888823 (Version 2)
Quarter: 2013Q1

REPORT INFORMATION
  Report Type: Spontaneous
  Country: BR (occurrence: BR)
  Receive Date: 20121106
  Receipt Date: 20130322
  Transmission Date: 20140127
  Serious: Yes (Hospitalization)
  Sender: FDA-Public Use
  Company Number: PHHY2012BR099436

PATIENT
  Sex: Male

DRUGS (10)
  1. DIOVAN HCT [Suspect]
     Indication: BLOOD PRESSURE
     Dosage: 1 DF (320 MG VALS AND 12.5 MG HYDRO), PER DAY
  2. FORASEQ [Suspect]
     Indication: DYSPNOEA
     Dosage: 1 DF (EVERY 12 HOURS 12 MCG FORMOTEROL AND 200 MCG BUDENOSIDE), BID
  3. CLOPIDOGREL [Suspect]
     Dosage: 75 MG, UNK
  4. AMLODIPINE [Suspect]
     Indication: HYPERTENSION
     Dosage: 1 DF, PER DAY
  5. AAS [Suspect]
     Dosage: 1 DF, PER DAY
  6. SUSTRATE [Suspect]
     Indication: HYPERTENSION
     Dosage: 1 DF, PER DAY
  7. CEBRALAT [Concomitant]
     Indication: HYPERTENSION
     Dosage: 2 DF, PER DAY
     Route: 048
  8. ENALAPRIL [Concomitant]
     Dosage: 2 DF, UNK
     Route: 048
  9. SIMVASTATIN [Concomitant]
     Indication: HYPERTENSION
     Dosage: 1 DF, PER DAY
     Route: 048
  10. VASTAREL [Concomitant]
     Dosage: 2 DF DAILY

REACTIONS (1)
  - Arrhythmia [Recovering/Resolving]
